FAERS Safety Report 4416050-5 (Version None)
Quarter: 2004Q3

REPORT INFORMATION
  Report Type: 
  Country: None (occurrence: None)
  Receive Date: 20040730
  Receipt Date: 20040717
  Transmission Date: 20050211
  Serious: Yes (Hospitalization)
  Sender: FDA-Public Use
  Company Number: 2004036887

PATIENT
  Age: 59 Year
  Sex: Female

DRUGS (8)
  1. GEODON [Suspect]
     Indication: SCHIZOAFFECTIVE DISORDER
     Dosage: 280 MG (140 MG, 2 IN 1 D)
     Dates: start: 20040527, end: 20040602
  2. TIAGABINE HYDROCHLORIDE (TIAGABINE HYDROCHLORIDE) [Suspect]
     Indication: ILL-DEFINED DISORDER
     Dosage: 16 MG (8 MG, 2 IN 1 D),
     Dates: start: 20040527, end: 20040602
  3. ENALAPRIL MALEATE [Concomitant]
  4. METFORMIN HCL [Concomitant]
  5. INSULIN GLARGINE (INSULIN GLARGINE) [Concomitant]
  6. AMANTADINE HCL [Concomitant]
  7. VENLAFAXINE HCL [Concomitant]
  8. ESCITALOPRAM (ESCITALOPRAM) [Concomitant]

REACTIONS (6)
  - COLD SWEAT [None]
  - DEPRESSED LEVEL OF CONSCIOUSNESS [None]
  - DEPRESSION [None]
  - FALL [None]
  - FOOT FRACTURE [None]
  - HYPERHIDROSIS [None]
